FAERS Safety Report 7054598-8 (Version None)
Quarter: 2010Q4

REPORT INFORMATION
  Report Type: 
  Country: None (occurrence: None)
  Receive Date: 20101015
  Receipt Date: 20101008
  Transmission Date: 20110411
  Serious: Yes (Death)
  Sender: FDA-Public Use
  Company Number: DSA_44069_2010

PATIENT
  Sex: Male

DRUGS (2)
  1. XENAZINE [Suspect]
     Indication: CHOREA
     Dosage: (25 MG QID ORAL)
     Route: 048
     Dates: start: 20100101
  2. XENAZINE [Suspect]
     Indication: DYSKINESIA
     Dosage: (25 MG QID ORAL)
     Route: 048
     Dates: start: 20100101

REACTIONS (1)
  - DEATH [None]
